FAERS Safety Report 13614335 (Version 1)
Quarter: 2017Q2

REPORT INFORMATION
  Report Type: Spontaneous
  Country: US (occurrence: US)
  Receive Date: 20170606
  Receipt Date: 20170606
  Transmission Date: 20170830
  Serious: Yes (Hospitalization)
  Sender: FDA-Public Use
  Company Number: US-BEH-2017080912

PATIENT
  Sex: Female
  Weight: 92.97 kg

DRUGS (39)
  1. HIZENTRA [Suspect]
     Active Substance: HUMAN IMMUNOGLOBULIN G
     Indication: HYPOGAMMAGLOBULINAEMIA
     Dosage: 15 G, QW
     Route: 058
     Dates: start: 20130425
  2. EPINEPHRINE. [Concomitant]
     Active Substance: EPINEPHRINE
  3. LASIX [Concomitant]
     Active Substance: FUROSEMIDE
  4. KETOPROFEN. [Concomitant]
     Active Substance: KETOPROFEN
  5. AMOXICILLIN. [Concomitant]
     Active Substance: AMOXICILLIN
  6. ATIVAN [Concomitant]
     Active Substance: LORAZEPAM
  7. TEARS [Concomitant]
  8. VERAMYST [Concomitant]
     Active Substance: FLUTICASONE FUROATE
  9. BENTYL [Concomitant]
     Active Substance: DICYCLOMINE HYDROCHLORIDE
  10. ZITHROMAX [Concomitant]
     Active Substance: AZITHROMYCIN DIHYDRATE
  11. DOXYCYCLINE HYCLATE. [Concomitant]
     Active Substance: DOXYCYCLINE HYCLATE
  12. TYLENOL [Concomitant]
     Active Substance: ACETAMINOPHEN
  13. METOPROLOL TARTRATE. [Concomitant]
     Active Substance: METOPROLOL TARTRATE
  14. HIZENTRA [Suspect]
     Active Substance: HUMAN IMMUNOGLOBULIN G
     Dosage: UNK
     Route: 058
  15. DIPHENHYDRAMINE. [Concomitant]
     Active Substance: DIPHENHYDRAMINE
  16. LOSARTAN. [Concomitant]
     Active Substance: LOSARTAN
  17. PERCOCET                           /00446701/ [Concomitant]
     Active Substance: ACETAMINOPHEN\OXYCODONE HYDROCHLORIDE\OXYCODONE TEREPHTHALATE
  18. ZOCOR [Concomitant]
     Active Substance: SIMVASTATIN
  19. SINGULAIR [Concomitant]
     Active Substance: MONTELUKAST SODIUM
  20. LIDOCAINE. [Concomitant]
     Active Substance: LIDOCAINE
  21. SPIRONOLACTONE. [Concomitant]
     Active Substance: SPIRONOLACTONE
  22. CEFTIN [Concomitant]
     Active Substance: CEFUROXIME AXETIL
  23. QVAR [Concomitant]
     Active Substance: BECLOMETHASONE DIPROPIONATE
  24. CELEXA [Concomitant]
     Active Substance: CITALOPRAM HYDROBROMIDE
  25. ZANTAC [Concomitant]
     Active Substance: RANITIDINE HYDROCHLORIDE
  26. SEREVENT DISKUS [Concomitant]
     Active Substance: SALMETEROL XINAFOATE
  27. LIDODERM [Concomitant]
     Active Substance: LIDOCAINE
  28. ALBUTEROL SULFATE. [Concomitant]
     Active Substance: ALBUTEROL SULFATE
  29. ZYRTEC [Concomitant]
     Active Substance: CETIRIZINE HYDROCHLORIDE
  30. MUCINEX [Concomitant]
     Active Substance: GUAIFENESIN
  31. ATROVENT HFA [Concomitant]
     Active Substance: IPRATROPIUM BROMIDE
  32. SALINE                             /00075401/ [Concomitant]
     Active Substance: SODIUM CHLORIDE
  33. CYMBALTA [Concomitant]
     Active Substance: DULOXETINE HYDROCHLORIDE
  34. MULTIVITAMINS [Concomitant]
     Active Substance: VITAMINS
  35. PRILOSEC [Concomitant]
     Active Substance: OMEPRAZOLE MAGNESIUM
  36. FLORICAL [Concomitant]
     Active Substance: DIETARY SUPPLEMENT
  37. HIZENTRA [Suspect]
     Active Substance: HUMAN IMMUNOGLOBULIN G
     Dosage: UNK
     Route: 058
  38. HIZENTRA [Suspect]
     Active Substance: HUMAN IMMUNOGLOBULIN G
     Dosage: UNK
     Route: 058
  39. EPIPEN [Concomitant]
     Active Substance: EPINEPHRINE

REACTIONS (1)
  - Abdominal pain upper [Unknown]
